FAERS Safety Report 10559174 (Version 1)
Quarter: 2014Q4

REPORT INFORMATION
  Report Type: Spontaneous
  Country: US (occurrence: US)
  Receive Date: 20141103
  Receipt Date: 20141103
  Transmission Date: 20150529
  Serious: Yes (Hospitalization, Other)
  Sender: FDA-Public Use
  Company Number: US-AMGEN-USASP2014084246

PATIENT
  Age: 64 Year
  Sex: Female

DRUGS (1)
  1. ENBREL [Suspect]
     Active Substance: ETANERCEPT
     Indication: PSORIASIS
     Dosage: 25 MG, 2 TIMES/WK
     Route: 065
     Dates: start: 20040610

REACTIONS (7)
  - Arthritis [Not Recovered/Not Resolved]
  - Psoriasis [Recovered/Resolved]
  - Post procedural inflammation [Recovered/Resolved]
  - Fall [Recovered/Resolved]
  - Erythema [Recovered/Resolved]
  - Ligament rupture [Recovered/Resolved]
  - Knee arthroplasty [Recovered/Resolved]

NARRATIVE: CASE EVENT DATE: 2011
